FAERS Safety Report 19063988 (Version 2)
Quarter: 2021Q2

REPORT INFORMATION
  Report Type: Spontaneous
  Country: US (occurrence: US)
  Receive Date: 20210326
  Receipt Date: 20210430
  Transmission Date: 20210717
  Serious: Yes (Death, Life-Threatening, Hospitalization, Other)
  Sender: FDA-Public Use
  Company Number: US-AMGEN-USASP2021044548

PATIENT

DRUGS (1)
  1. BLINATUMOMAB [Suspect]
     Active Substance: BLINATUMOMAB
     Indication: ACUTE LYMPHOCYTIC LEUKAEMIA
     Dosage: UNK
     Route: 065

REACTIONS (16)
  - Neoplasm progression [Fatal]
  - Acute respiratory distress syndrome [Unknown]
  - Superinfection bacterial [Unknown]
  - Seizure [Unknown]
  - Acute myeloid leukaemia [Fatal]
  - Febrile neutropenia [Unknown]
  - Alanine aminotransferase increased [Unknown]
  - Inflammation [Unknown]
  - Thrombosis [Unknown]
  - Fungaemia [Unknown]
  - COVID-19 [Unknown]
  - Hyperleukocytosis [Fatal]
  - Pneumonia aspiration [Unknown]
  - Lymphopenia [Unknown]
  - Acute kidney injury [Unknown]
  - Embolism [Unknown]
